FAERS Safety Report 13030690 (Version 2)
Quarter: 2016Q4

REPORT INFORMATION
  Report Type: Report from Study
  Country: US (occurrence: US)
  Receive Date: 20161215
  Receipt Date: 20161220
  Transmission Date: 20170207
  Serious: Yes (Hospitalization, Other)
  Sender: FDA-Public Use
  Company Number: US-GILEAD-2016-0240451

PATIENT
  Age: 38 Year
  Sex: Male
  Weight: 77.98 kg

DRUGS (10)
  1. TYVASO [Concomitant]
     Active Substance: TREPROSTINIL
  2. ALPRAZOLAM. [Concomitant]
     Active Substance: ALPRAZOLAM
  3. SILDENAFIL. [Concomitant]
     Active Substance: SILDENAFIL
  4. BACLOFEN. [Concomitant]
     Active Substance: BACLOFEN
  5. DIGOXIN. [Concomitant]
     Active Substance: DIGOXIN
  6. TORSEMIDE. [Concomitant]
     Active Substance: TORSEMIDE
  7. DOXEPIN [Concomitant]
     Active Substance: DOXEPIN
  8. AMBRISENTAN [Suspect]
     Active Substance: AMBRISENTAN
     Indication: PULMONARY ARTERIAL HYPERTENSION
     Dosage: 5 MG, QD
     Route: 065
  9. DIVALPROEX [Concomitant]
     Active Substance: DIVALPROEX SODIUM
  10. LYRICA [Concomitant]
     Active Substance: PREGABALIN

REACTIONS (6)
  - Swelling [Not Recovered/Not Resolved]
  - Oropharyngeal pain [Unknown]
  - Pneumonia [Unknown]
  - Heart rate increased [Recovered/Resolved]
  - Fluid retention [Not Recovered/Not Resolved]
  - Cough [Not Recovered/Not Resolved]

NARRATIVE: CASE EVENT DATE: 20161110
